FAERS Safety Report 8848068 (Version 1)
Quarter: 2012Q4

REPORT INFORMATION
  Report Type: 
  Country: US (occurrence: US)
  Receive Date: 20121018
  Receipt Date: 20121018
  Transmission Date: 20130627
  Serious: Yes (Hospitalization)
  Sender: FDA-Public Use
  Company Number: US-ROCHE-1140394

PATIENT
  Sex: Female
  Weight: 21.4 kg

DRUGS (1)
  1. PROTROPIN [Suspect]
     Indication: TURNER^S SYNDROME
     Dosage: dose: 0.375 mg/kg/week, daily dose: 5 mg/cc
     Route: 058
     Dates: start: 19930917

REACTIONS (2)
  - Rash erythematous [Unknown]
  - Neoplasm [Recovered/Resolved]
